FAERS Safety Report 24025110 (Version 1)
Quarter: 2024Q2

REPORT INFORMATION
  Report Type: Spontaneous
  Country: PL (occurrence: PL)
  Receive Date: 20240628
  Receipt Date: 20240628
  Transmission Date: 20240716
  Serious: Yes (Death, Hospitalization, Other)
  Sender: FDA-Public Use
  Company Number: PL-JNJFOC-20240668032

PATIENT
  Age: 56 Year

DRUGS (3)
  1. IMBRUVICA [Suspect]
     Active Substance: IBRUTINIB
     Indication: Mantle cell lymphoma
     Route: 048
  2. IMBRUVICA [Suspect]
     Active Substance: IBRUTINIB
     Indication: Mantle cell lymphoma
     Route: 048
     Dates: start: 20150408
  3. IMBRUVICA [Suspect]
     Active Substance: IBRUTINIB
     Indication: Mantle cell lymphoma
     Route: 048

REACTIONS (6)
  - Cytopenia [Fatal]
  - Myelosuppression [Unknown]
  - Mantle cell lymphoma recurrent [Unknown]
  - Thrombocytopenia [Unknown]
  - Infection [Unknown]
  - Leukopenia [Unknown]

NARRATIVE: CASE EVENT DATE: 20230601
